FAERS Safety Report 7669388-2 (Version None)
Quarter: 2011Q3

REPORT INFORMATION
  Report Type: 
  Country: None (occurrence: None)
  Receive Date: 20110808
  Receipt Date: 20110726
  Transmission Date: 20111222
  Serious: Yes (Other)
  Sender: FDA-Public Use
  Company Number: FR-ROCHE-793256

PATIENT
  Sex: Male

DRUGS (4)
  1. ISOTRETINOIN [Suspect]
     Route: 048
     Dates: start: 19990902
  2. ISOTRETINOIN [Suspect]
     Route: 048
     Dates: start: 20010214, end: 20020810
  3. ULTRALAN [Concomitant]
     Route: 065
     Dates: start: 19990217
  4. ERYTHROGEL [Concomitant]
     Route: 065
     Dates: start: 19990217

REACTIONS (5)
  - ASTHENIA [None]
  - INGROWING NAIL [None]
  - LIP EXFOLIATION [None]
  - BACK PAIN [None]
  - EYE BURNS [None]
